FAERS Safety Report 4745765-4 (Version None)
Quarter: 2005Q3

REPORT INFORMATION
  Report Type: 
  Country: None (occurrence: None)
  Receive Date: 20050816
  Receipt Date: 20050808
  Transmission Date: 20060218
  Serious: Yes (Other)
  Sender: FDA-Public Use
  Company Number: PHBS2005IE11419

PATIENT
  Sex: Male

DRUGS (2)
  1. ZOMETA [Suspect]
  2. THALIDOMIDE [Concomitant]

REACTIONS (2)
  - ASEPTIC NECROSIS BONE [None]
  - JAW OPERATION [None]
